FAERS Safety Report 5253704-5 (Version None)
Quarter: 2007Q1

REPORT INFORMATION
  Report Type: 
  Country: None (occurrence: None)
  Receive Date: 20070301
  Receipt Date: 20070219
  Transmission Date: 20070707
  Serious: Yes (Hospitalization)
  Sender: FDA-Public Use
  Company Number: JP-MERCK-0702USA03991

PATIENT
  Age: 54 Year
  Sex: Male

DRUGS (4)
  1. PEPCID [Suspect]
     Route: 065
     Dates: start: 20040901, end: 20041201
  2. MOSAPRIDE CITRATE [Concomitant]
     Route: 065
  3. POTASSIUM CHLORIDE AND SODIUM CHLORIDE [Concomitant]
     Route: 065
  4. SODIUM CHLORIDE [Concomitant]
     Route: 065

REACTIONS (12)
  - ABDOMINAL PAIN UPPER [None]
  - ASTHENIA [None]
  - HAEMATOCRIT INCREASED [None]
  - HYPOCHLORAEMIA [None]
  - HYPOKALAEMIA [None]
  - METABOLIC ACIDOSIS [None]
  - NAUSEA [None]
  - NEPHRITIS INTERSTITIAL [None]
  - RENAL IMPAIRMENT [None]
  - RESPIRATORY ALKALOSIS [None]
  - URINE OUTPUT DECREASED [None]
  - VOMITING [None]
